FAERS Safety Report 10034316 (Version 2)
Quarter: 2014Q2

REPORT INFORMATION
  Report Type: Spontaneous
  Country: IT (occurrence: IT)
  Receive Date: 20140325
  Receipt Date: 20140403
  Transmission Date: 20141212
  Serious: Yes (Other)
  Sender: FDA-Public Use
  Company Number: IT-ACCORD-022685

PATIENT
  Age: 68 Year
  Sex: Male
  Weight: 80 kg

DRUGS (5)
  1. GEMCITABINE ACCORD [Suspect]
     Indication: BLADDER SQUAMOUS CELL CARCINOMA STAGE UNSPECIFIED
     Dosage: PATIENT RECEIVED LAST DOSE ON 30-OCT-2013
     Route: 042
     Dates: start: 20130517
  2. RAMIPRIL [Concomitant]
  3. CARDIOASPIRIN [Concomitant]
  4. CARBOPLATIN [Suspect]
     Indication: BLADDER SQUAMOUS CELL CARCINOMA STAGE UNSPECIFIED
     Dosage: PATIENT RECEIVED LAST DOSE ON 30-OCT-2013.
     Route: 042
     Dates: start: 20130517
  5. GLIBENCLAMIDE [Concomitant]

REACTIONS (4)
  - Off label use [Unknown]
  - Pyrexia [Recovered/Resolved]
  - Anaemia [Recovering/Resolving]
  - Urinary tract infection [Not Recovered/Not Resolved]
